FAERS Safety Report 5883205-2 (Version None)
Quarter: 2008Q3

REPORT INFORMATION
  Report Type: 
  Country: None (occurrence: None)
  Receive Date: 20080915
  Receipt Date: 20080902
  Transmission Date: 20090109
  Serious: Yes (Other)
  Sender: FDA-Public Use
  Company Number: GB-RANBAXY-2008RR-17767

PATIENT

DRUGS (6)
  1. METFORMIN HCL [Suspect]
     Indication: DIABETES MELLITUS
     Dosage: UNK
     Route: 048
     Dates: start: 20030101
  2. ADALAT [Concomitant]
  3. ASPIRIN [Concomitant]
  4. GLICLAZIDE [Concomitant]
  5. RABEPRAZOLE SODIUM [Concomitant]
  6. RAMIPRIL [Concomitant]

REACTIONS (2)
  - MEAN CELL VOLUME INCREASED [None]
  - VITAMIN B1 DEFICIENCY [None]
